FAERS Safety Report 18947833 (Version 4)
Quarter: 2021Q3

REPORT INFORMATION
  Report Type: Spontaneous
  Country: FR (occurrence: FR)
  Receive Date: 20210226
  Receipt Date: 20210914
  Transmission Date: 20211014
  Serious: Yes (Life-Threatening, Hospitalization, Other)
  Sender: FDA-Public Use
  Company Number: FR-GLAXOSMITHKLINE-FR2021EME053961

PATIENT
  Age: 56 Year
  Sex: Male
  Weight: 100 kg

DRUGS (17)
  1. CLARELUX [Suspect]
     Active Substance: CLOBETASOL PROPIONATE
     Dosage: UNK
     Dates: start: 20180108, end: 20190408
  2. STELARA [Suspect]
     Active Substance: USTEKINUMAB
     Dosage: 45 MG, ONCE EVERY 12 WEEKS
     Route: 058
     Dates: start: 20170226, end: 20180110
  3. DEXERYL (FRANCE) [Suspect]
     Active Substance: GLYCERIN\MINERAL OIL\PETROLATUM
     Indication: PSORIASIS
     Dosage: UNK
     Dates: start: 20161219
  4. DAIVOBET [Suspect]
     Active Substance: BETAMETHASONE DIPROPIONATE\CALCIPOTRIENE
     Indication: PSORIASIS
     Dosage: UNK
     Dates: start: 20161219
  5. CLARELUX [Suspect]
     Active Substance: CLOBETASOL PROPIONATE
     Indication: PSORIASIS
     Dosage: UNK
     Dates: start: 20161219
  6. HUMIRA [Suspect]
     Active Substance: ADALIMUMAB
     Dosage: 40 MG (ONCE AT 2 WEEK)
     Route: 058
     Dates: start: 20130630, end: 20160928
  7. STELARA [Suspect]
     Active Substance: USTEKINUMAB
     Indication: PSORIASIS
     Dosage: 45 MG, Z (ONCE EVERY 4 WEEKS)
     Route: 058
     Dates: start: 20170126, end: 20170226
  8. DAIVOBET [Suspect]
     Active Substance: BETAMETHASONE DIPROPIONATE\CALCIPOTRIENE
     Dosage: UNK
     Dates: start: 20190408
  9. TALTZ [Suspect]
     Active Substance: IXEKIZUMAB
     Indication: PSORIASIS
  10. SEBIPROX [Suspect]
     Active Substance: CICLOPIROX OLAMINE
     Indication: PSORIASIS
     Dosage: UNK
     Dates: start: 20161219
  11. SEBIPROX [Suspect]
     Active Substance: CICLOPIROX OLAMINE
     Dosage: UNK
     Dates: start: 20180108
  12. STELARA [Suspect]
     Active Substance: USTEKINUMAB
     Dosage: 45 MG, ONCE EVERY 14 WEEKS
     Route: 048
     Dates: start: 20180110, end: 20180418
  13. ACITRETIN. [Suspect]
     Active Substance: ACITRETIN
     Indication: PSORIASIS
     Dosage: 80 MG, WE
     Dates: start: 20130531
  14. HUMIRA [Suspect]
     Active Substance: ADALIMUMAB
     Indication: PSORIASIS
     Dosage: 80 MG, Z (EVERY WEEK)
     Route: 058
     Dates: start: 20130531, end: 20130630
  15. ACITRETIN. [Suspect]
     Active Substance: ACITRETIN
     Dosage: UNK
  16. METHOTREXATE. [Suspect]
     Active Substance: METHOTREXATE
     Indication: PSORIASIS
     Dosage: 15 MG, WE
     Route: 048
     Dates: start: 2013, end: 2013
  17. TALTZ [Suspect]
     Active Substance: IXEKIZUMAB
     Indication: MYOCARDIAL INFARCTION
     Dosage: 160 MG ONCE EVERY 2 WEEK
     Route: 058
     Dates: start: 20190408

REACTIONS (3)
  - Type 2 diabetes mellitus [Recovered/Resolved]
  - Angioplasty [Recovered/Resolved]
  - Myocardial infarction [Recovered/Resolved]
